FAERS Safety Report 15246059 (Version 3)
Quarter: 2020Q2

REPORT INFORMATION
  Report Type: Spontaneous
  Country: US (occurrence: US)
  Receive Date: 20180806
  Receipt Date: 20200626
  Transmission Date: 20200713
  Serious: No
  Sender: FDA-Public Use
  Company Number: US-PFIZER INC-2018314088

PATIENT
  Age: 12 Year
  Sex: Male

DRUGS (2)
  1. GENOTROPIN [Suspect]
     Active Substance: SOMATROPIN
     Dosage: 1.2 MG, DAILY
     Dates: start: 201801
  2. GENOTROPIN [Suspect]
     Active Substance: SOMATROPIN
     Dosage: UNK (1.6MG)
     Dates: start: 2017

REACTIONS (4)
  - Injection site pain [Unknown]
  - Product dose omission [Unknown]
  - Device breakage [Unknown]
  - Headache [Unknown]

NARRATIVE: CASE EVENT DATE: 2018
